FAERS Safety Report 12332397 (Version 4)
Quarter: 2017Q4

REPORT INFORMATION
  Report Type: Spontaneous
  Country: US (occurrence: US)
  Receive Date: 20160504
  Receipt Date: 20171027
  Transmission Date: 20180320
  Serious: No
  Sender: FDA-Public Use
  Company Number: US-ROCHE-1674357

PATIENT
  Age: 79 Year
  Sex: Female

DRUGS (3)
  1. ESBRIET [Suspect]
     Active Substance: PIRFENIDONE
     Route: 048
     Dates: start: 20150614
  2. PREDNISONE. [Concomitant]
     Active Substance: PREDNISONE
  3. ESBRIET [Suspect]
     Active Substance: PIRFENIDONE
     Indication: IDIOPATHIC PULMONARY FIBROSIS
     Dosage: 3 CAPSULES, THREE TIMES A DAY
     Route: 048
     Dates: start: 20150617

REACTIONS (5)
  - Blood urine present [Unknown]
  - Abdominal discomfort [Unknown]
  - Weight decreased [Unknown]
  - White blood cell count increased [Unknown]
  - Renal cyst [Unknown]

NARRATIVE: CASE EVENT DATE: 201611
